FAERS Safety Report 26174274 (Version 1)
Quarter: 2025Q4

REPORT INFORMATION
  Report Type: Spontaneous
  Country: US (occurrence: None)
  Receive Date: 20251217
  Receipt Date: 20251217
  Transmission Date: 20260118
  Serious: Yes (Other)
  Sender: FDA-CTU
  Company Number: None

PATIENT
  Sex: Female

DRUGS (11)
  1. LENALIDOMIDE [Suspect]
     Active Substance: LENALIDOMIDE
     Indication: Plasma cell myeloma
     Dosage: OTHER FREQUENCY : DAILY FOR 21 DAYS.;?FREQ: TAKE 1 CAPSULE BY MOUTH ONCE DAILY FOR 21 DAYS.
     Route: 048
     Dates: start: 20240718
  2. ACITRETIN [Concomitant]
     Active Substance: ACITRETIN
  3. ACYCLOVIR [Concomitant]
     Active Substance: ACYCLOVIR
  4. ALIGN [Concomitant]
     Active Substance: BIFIDOBACTERIUM LONGUM SUBSP. INFANTIS
  5. ASPIRIN [Concomitant]
     Active Substance: ASPIRIN
  6. AVASTIN [Concomitant]
     Active Substance: BEVACIZUMAB
  7. CARVEDILOL [Concomitant]
     Active Substance: CARVEDILOL
  8. DICYCLOMINE [Concomitant]
     Active Substance: DICYCLOMINE HYDROCHLORIDE
  9. FAMOTIDINE [Concomitant]
     Active Substance: FAMOTIDINE
  10. FERROUS SULFATE [Concomitant]
     Active Substance: FERROUS SULFATE
  11. GABAPENTIN [Concomitant]
     Active Substance: GABAPENTIN

REACTIONS (2)
  - Pancytopenia [None]
  - Diarrhoea [None]
